FAERS Safety Report 7986714-5 (Version None)
Quarter: 2011Q4

REPORT INFORMATION
  Report Type: 
  Country: None (occurrence: None)
  Receive Date: 20111216
  Receipt Date: 20110816
  Transmission Date: 20120403
  Serious: Yes (Other)
  Sender: FDA-Public Use
  Company Number: US-BRISTOL-MYERS SQUIBB COMPANY-15980717

PATIENT
  Age: 13 Year
  Sex: Male
  Weight: 69 kg

DRUGS (1)
  1. ABILIFY [Suspect]
     Dosage: INITIAL DOSE 15MG.
     Dates: start: 20090914

REACTIONS (2)
  - WEIGHT INCREASED [None]
  - AGGRESSION [None]
